FAERS Safety Report 10055661 (Version 1)
Quarter: 2014Q2

REPORT INFORMATION
  Report Type: Spontaneous
  Country: US (occurrence: None)
  Receive Date: 20140402
  Receipt Date: 20140402
  Transmission Date: 20141212
  Serious: Yes (Other)
  Sender: FDA-Public Use
  Company Number: None

PATIENT
  Age: 28 Year
  Sex: Female
  Weight: 52.16 kg

DRUGS (1)
  1. MUCINEX [Suspect]
     Dosage: 1 PAROXETINE, ONCE DAILY, TAKEN BY MOUTH
     Route: 048

REACTIONS (2)
  - Somnolence [None]
  - Dizziness [None]
